FAERS Safety Report 7810419-4 (Version None)
Quarter: 2011Q4

REPORT INFORMATION
  Report Type: 
  Country: None (occurrence: None)
  Receive Date: 20111012
  Receipt Date: 20111003
  Transmission Date: 20120403
  Serious: Yes (Hospitalization)
  Sender: FDA-Public Use
  Company Number: US-MERCK-1107USA01651

PATIENT
  Age: 79 Year
  Sex: Female

DRUGS (3)
  1. MAXALT-MLT [Suspect]
     Route: 060
     Dates: start: 20110701
  2. MAXALT-MLT [Suspect]
     Route: 065
  3. MAXALT-MLT [Suspect]
     Indication: MIGRAINE
     Route: 060

REACTIONS (4)
  - RIB FRACTURE [None]
  - CONTUSION [None]
  - EXOPHTHALMOS [None]
  - DRUG INEFFECTIVE [None]
